FAERS Safety Report 19882386 (Version 2)
Quarter: 2022Q1

REPORT INFORMATION
  Report Type: Spontaneous
  Country: US (occurrence: US)
  Receive Date: 20210924
  Receipt Date: 20220127
  Transmission Date: 20220423
  Serious: No
  Sender: FDA-Public Use
  Company Number: US-TEVA-2021-US-1956533

PATIENT
  Age: 69 Year
  Sex: Female
  Weight: 63.5 kg

DRUGS (6)
  1. DOCETAXEL [Suspect]
     Active Substance: DOCETAXEL
     Indication: Breast cancer female
     Dosage: EVERY THREE WEEKS, 4 CYCLES
     Route: 065
     Dates: start: 20150715, end: 20150917
  2. CYTOXAN [Concomitant]
     Active Substance: CYCLOPHOSPHAMIDE
     Indication: Breast cancer female
     Dosage: EVERY 3 WEEKS FOR 4 CYCLES
     Dates: start: 20150715, end: 20150917
  3. LEVOXYL [Concomitant]
     Active Substance: LEVOTHYROXINE SODIUM
     Dosage: ONGOING
     Dates: start: 2008
  4. BUDESONIDE [Concomitant]
     Active Substance: BUDESONIDE
     Dosage: ONGOING
     Dates: start: 2008
  5. ATORVASTATIN [Concomitant]
     Active Substance: ATORVASTATIN
  6. METOPROLOL [Concomitant]
     Active Substance: METOPROLOL

REACTIONS (3)
  - Alopecia areata [Not Recovered/Not Resolved]
  - Hair texture abnormal [Not Recovered/Not Resolved]
  - Hair colour changes [Not Recovered/Not Resolved]

NARRATIVE: CASE EVENT DATE: 20160201
